FAERS Safety Report 8826368 (Version 5)
Quarter: 2022Q3

REPORT INFORMATION
  Report Type: Other
  Country: CA (occurrence: None)
  Receive Date: 20121005
  Receipt Date: 20220708
  Transmission Date: 20221027
  Serious: Yes (Other)
  Sender: FDA-Public Use
  Company Number: CA-ROCHE-1140716

PATIENT
  Age: 58 Year
  Sex: Female
  Weight: 65.8 kg

DRUGS (15)
  1. RITUXAN [Suspect]
     Active Substance: RITUXIMAB
     Indication: Rheumatoid arthritis
     Dosage: DAY 1 , 15
     Route: 042
     Dates: start: 20080915
  2. RITUXAN [Suspect]
     Active Substance: RITUXIMAB
     Route: 042
     Dates: start: 20090922
  3. RITUXAN [Suspect]
     Active Substance: RITUXIMAB
     Dosage: RECEIVED RITUXAN OUTSIDE OF RPAP - 2 INFUSIONS
     Route: 042
  4. LISINOPRIL [Concomitant]
     Active Substance: LISINOPRIL
  5. NORVASC [Concomitant]
     Active Substance: AMLODIPINE BESYLATE
  6. ACTONEL [Concomitant]
     Active Substance: RISEDRONATE SODIUM
  7. FOLIC ACID [Concomitant]
     Active Substance: FOLIC ACID
  8. PREVACID [Concomitant]
     Active Substance: LANSOPRAZOLE
  9. SYNTHROID [Concomitant]
     Active Substance: LEVOTHYROXINE SODIUM
  10. TYLENOL ARTHRITIS PAIN [Concomitant]
     Active Substance: ACETAMINOPHEN
  11. DIPHENHYDRAMINE HYDROCHLORIDE [Concomitant]
     Active Substance: DIPHENHYDRAMINE HYDROCHLORIDE
     Route: 048
     Dates: start: 20090922
  12. ACETAMINOPHEN [Concomitant]
     Active Substance: ACETAMINOPHEN
     Route: 048
     Dates: start: 20090922
  13. METHYLPREDNISOLONE [Concomitant]
     Active Substance: METHYLPREDNISOLONE
     Route: 042
     Dates: start: 20090922
  14. METHOTREXATE [Concomitant]
     Active Substance: METHOTREXATE
  15. PREDNISONE [Concomitant]
     Active Substance: PREDNISONE

REACTIONS (2)
  - Dermal cyst [Recovered/Resolved]
  - Ear infection fungal [Not Recovered/Not Resolved]

NARRATIVE: CASE EVENT DATE: 20130101
